FAERS Safety Report 7076389-4 (Version None)
Quarter: 2010Q4

REPORT INFORMATION
  Report Type: 
  Country: None (occurrence: None)
  Receive Date: 20101101
  Receipt Date: 20101019
  Transmission Date: 20110411
  Serious: Yes (Hospitalization)
  Sender: FDA-Public Use
  Company Number: US-SANOFI-AVENTIS-200810934GDDC

PATIENT
  Age: 46 Year
  Sex: Female
  Weight: 45 kg

DRUGS (3)
  1. TAXOTERE [Suspect]
     Route: 041
     Dates: start: 20071226, end: 20071226
  2. BEVACIZUMAB [Suspect]
     Route: 042
     Dates: start: 20080114, end: 20080114
  3. ASPIRIN [Concomitant]
     Dosage: DOSE AS USED: UNK

REACTIONS (1)
  - CHRONIC OBSTRUCTIVE PULMONARY DISEASE [None]
